FAERS Safety Report 25888324 (Version 2)
Quarter: 2025Q4

REPORT INFORMATION
  Report Type: Spontaneous
  Country: CA (occurrence: CA)
  Receive Date: 20251007
  Receipt Date: 20251229
  Transmission Date: 20260117
  Serious: Yes (Other)
  Sender: BIOVITRUM
  Company Number: CA-BIOVITRUM-2025-CA-013644

PATIENT
  Age: 56 Year
  Sex: Male

DRUGS (1)
  1. AVATROMBOPAG [Suspect]
     Active Substance: AVATROMBOPAG
     Indication: Immune thrombocytopenia
     Dosage: GRADUALLY TITRATING UP

REACTIONS (2)
  - Platelet count decreased [Recovering/Resolving]
  - Adverse drug reaction [Unknown]
